FAERS Safety Report 5670351-1 (Version None)
Quarter: 2008Q1

REPORT INFORMATION
  Report Type: 
  Country: None (occurrence: None)
  Receive Date: 20080313
  Receipt Date: 20080228
  Transmission Date: 20080703
  Serious: Yes (Death)
  Sender: FDA-Public Use
  Company Number: 2008US000379

PATIENT
  Age: 77 Year
  Sex: Female
  Weight: 49.8 kg

DRUGS (1)
  1. AMEVIVE [Suspect]
     Indication: ANGIOIMMUNOBLASTIC T-CELL LYMPHOMA
     Dosage: 10 MG, WEEKLY, IV NOS
     Route: 042
     Dates: start: 20080107, end: 20080121

REACTIONS (4)
  - INJURY [None]
  - LOSS OF CONSCIOUSNESS [None]
  - MALAISE [None]
  - ROAD TRAFFIC ACCIDENT [None]
